FAERS Safety Report 16798657 (Version 2)
Quarter: 2020Q2

REPORT INFORMATION
  Report Type: Spontaneous
  Country: US (occurrence: US)
  Receive Date: 20190912
  Receipt Date: 20200429
  Transmission Date: 20200713
  Serious: Yes (Hospitalization, Other)
  Sender: FDA-Public Use
  Company Number: US-SA-2019SA252773

PATIENT
  Age: 48 Year
  Sex: Male
  Weight: 149.68 kg

DRUGS (46)
  1. MAGNESIUM [Concomitant]
     Active Substance: MAGNESIUM
  2. DIPHENHYDRAMINE. [Concomitant]
     Active Substance: DIPHENHYDRAMINE
  3. ZYRTEC-D [Concomitant]
     Active Substance: CETIRIZINE HYDROCHLORIDE\PSEUDOEPHEDRINE HYDROCHLORIDE
     Dosage: 5 MG-120MG TAB.SR 12H
  4. PRIVIGEN [Concomitant]
     Active Substance: HUMAN IMMUNOGLOBULIN G
  5. LISINOPRIL [LISINOPRIL DIHYDRATE] [Concomitant]
  6. VITAMIN C [Concomitant]
     Active Substance: ASCORBIC ACID
  7. CIALIS [Concomitant]
     Active Substance: TADALAFIL
  8. TESTOSTERONE. [Concomitant]
     Active Substance: TESTOSTERONE
  9. PANTOPRAZOLE SODIUM. [Concomitant]
     Active Substance: PANTOPRAZOLE SODIUM
  10. BREO ELLIPTA [Concomitant]
     Active Substance: FLUTICASONE FUROATE\VILANTEROL TRIFENATATE
     Dosage: 200-25 MCG BLST W/DEV
  11. CEFUROXIME. [Concomitant]
     Active Substance: CEFUROXIME
  12. XYZAL [Concomitant]
     Active Substance: LEVOCETIRIZINE DIHYDROCHLORIDE
  13. SINGULAIR [Concomitant]
     Active Substance: MONTELUKAST SODIUM
  14. ROBAXIN-750 [Concomitant]
     Active Substance: METHOCARBAMOL
  15. PROVENTIL HFA [SALBUTAMOL] [Concomitant]
  16. MOBIC [Concomitant]
     Active Substance: MELOXICAM
  17. SODIUM CHLORIDE. [Concomitant]
     Active Substance: SODIUM CHLORIDE
  18. STERILE WATER [Concomitant]
     Active Substance: WATER
  19. ZETIA [Concomitant]
     Active Substance: EZETIMIBE
  20. SODIUM CHLORIDE. [Concomitant]
     Active Substance: SODIUM CHLORIDE
  21. BROVANA [Concomitant]
     Active Substance: ARFORMOTEROL TARTRATE
  22. INCRUSE ELLIPTA [Concomitant]
     Active Substance: UMECLIDINIUM BROMIDE
  23. HYDROCODONE/ACETAMINOPHEN [Concomitant]
     Active Substance: ACETAMINOPHEN\HYDROCODONE
  24. EPINEPHRINE. [Concomitant]
     Active Substance: EPINEPHRINE
  25. SPIRIVA RESPIMAT [Concomitant]
     Active Substance: TIOTROPIUM BROMIDE
     Route: 055
  26. LEVALBUTEROL [LEVOSALBUTAMOL] [Concomitant]
     Active Substance: LEVALBUTEROL
  27. PROBIOTIC [BIFIDOBACTERIUM LACTIS] [Concomitant]
     Active Substance: BIFIDOBACTERIUM ANIMALIS LACTIS
     Dosage: 100B CELL CAPSULE
  28. ACETAMINOPHEN. [Concomitant]
     Active Substance: ACETAMINOPHEN
  29. LASIX [Concomitant]
     Active Substance: FUROSEMIDE
  30. SPIRONOLACTONE. [Concomitant]
     Active Substance: SPIRONOLACTONE
  31. DIGOXIN [BETA-ACETYLDIGOXIN] [Concomitant]
  32. TAMSULOSIN HCL [Concomitant]
     Active Substance: TAMSULOSIN HYDROCHLORIDE
  33. VERAPAMIL [Concomitant]
     Active Substance: VERAPAMIL HYDROCHLORIDE
  34. DIPHENHYDRAMINE HCL [Concomitant]
     Active Substance: DIPHENHYDRAMINE HYDROCHLORIDE
  35. SOLU-MEDROL [Concomitant]
     Active Substance: METHYLPREDNISOLONE SODIUM SUCCINATE
  36. XOLAIR [Concomitant]
     Active Substance: OMALIZUMAB
  37. UROCIT-K [Concomitant]
     Active Substance: POTASSIUM CITRATE
  38. LANSOPRAZOLE. [Concomitant]
     Active Substance: LANSOPRAZOLE
  39. CORLANOR [Concomitant]
     Active Substance: IVABRADINE HYDROCHLORIDE
  40. SENIOR [Concomitant]
     Dosage: 4-300-250 TABLET
  41. DUPIXENT [Suspect]
     Active Substance: DUPILUMAB
     Indication: HYPOGAMMAGLOBULINAEMIA
     Dosage: 300 MG, QOW
     Route: 058
  42. LIDOCAINE. [Concomitant]
     Active Substance: LIDOCAINE
  43. ANDROGEL [Concomitant]
     Active Substance: TESTOSTERONE
     Dosage: 20.25/1.25 GEL MD PMP
  44. XOPENEX [Concomitant]
     Active Substance: LEVALBUTEROL HYDROCHLORIDE
  45. CHLORTHALIDONE. [Concomitant]
     Active Substance: CHLORTHALIDONE
  46. SPIRIVA [Concomitant]
     Active Substance: TIOTROPIUM BROMIDE MONOHYDRATE

REACTIONS (6)
  - Myocardial infarction [Unknown]
  - Infusion related reaction [Unknown]
  - Cardiac disorder [Unknown]
  - Product use in unapproved indication [Unknown]
  - Pneumonia [Unknown]
  - Tachycardia [Unknown]
